FAERS Safety Report 8890600 (Version 2)
Quarter: 2012Q4

REPORT INFORMATION
  Report Type: Report from Study
  Country: SG (occurrence: SG)
  Receive Date: 20121107
  Receipt Date: 20121108
  Transmission Date: 20130627
  Serious: Yes (Hospitalization, Other)
  Sender: FDA-Public Use
  Company Number: SG-ASTELLAS-2012US010726

PATIENT
  Sex: Male

DRUGS (2)
  1. ERLOTINIB TABLET [Suspect]
     Indication: NON-SMALL CELL LUNG CANCER
     Dosage: 100 mg, UID/QD
     Route: 048
  2. VINORELBINE TARTRATE [Suspect]
     Indication: NON-SMALL CELL LUNG CANCER
     Dosage: 120 mg, On day 1 and day 8
     Route: 048

REACTIONS (5)
  - Incorrect dose administered [Unknown]
  - Neutropenia [Recovered/Resolved]
  - Pleural effusion [Recovering/Resolving]
  - Metastases to pleura [Unknown]
  - Vomiting [Unknown]
